FAERS Safety Report 16831709 (Version 2)
Quarter: 2019Q4

REPORT INFORMATION
  Report Type: Spontaneous
  Country: US (occurrence: US)
  Receive Date: 20190920
  Receipt Date: 20191101
  Transmission Date: 20200122
  Serious: Yes (Hospitalization, Other)
  Sender: FDA-Public Use
  Company Number: US-SA-2019SA261326

PATIENT
  Age: 87 Year
  Sex: Female
  Weight: 54 kg

DRUGS (6)
  1. LANOXIN [Concomitant]
     Active Substance: DIGOXIN
     Indication: CARDIAC DISORDER
     Dosage: UNK UNK, UNK
     Route: 065
  2. PLAVIX [Suspect]
     Active Substance: CLOPIDOGREL BISULFATE
     Dosage: UNK UNK, UNK
     Route: 065
  3. VERAPAMIL [Concomitant]
     Active Substance: VERAPAMIL HYDROCHLORIDE
     Indication: BLOOD PRESSURE MEASUREMENT
     Dosage: UNK
  4. B6 + B12 FOLIC ACID [Concomitant]
     Dosage: UNK UNK, UNK
     Route: 065
  5. ELIQUIS [Suspect]
     Active Substance: APIXABAN
     Indication: ATRIAL FIBRILLATION
     Dosage: 2.5 MG, BID
     Route: 048
     Dates: start: 201804
  6. PROTONIX [OMEPRAZOLE] [Concomitant]
     Active Substance: OMEPRAZOLE
     Indication: GASTROOESOPHAGEAL REFLUX DISEASE
     Dosage: UNK

REACTIONS (10)
  - Fistula [Unknown]
  - Pneumonia [Unknown]
  - Rectal fissure [Unknown]
  - Cardiac disorder [Unknown]
  - Anorectal discomfort [Unknown]
  - Weight decreased [Unknown]
  - Pain [Unknown]
  - Haemorrhage [Unknown]
  - Proctalgia [Unknown]
  - Faeces hard [Unknown]
